FAERS Safety Report 13860559 (Version 3)
Quarter: 2017Q4

REPORT INFORMATION
  Report Type: Spontaneous
  Country: US (occurrence: US)
  Receive Date: 20170811
  Receipt Date: 20171013
  Transmission Date: 20180320
  Serious: Yes (Other)
  Sender: FDA-Public Use
  Company Number: US-JNJFOC-20170809341

PATIENT
  Age: 13 Year
  Sex: Male
  Weight: 58 kg

DRUGS (1)
  1. REMICADE [Suspect]
     Active Substance: INFLIXIMAB
     Indication: CROHN^S DISEASE
     Route: 042
     Dates: start: 20160815

REACTIONS (3)
  - Off label use [Unknown]
  - Product use issue [Unknown]
  - Hereditary spherocytosis [Unknown]

NARRATIVE: CASE EVENT DATE: 2016
